FAERS Safety Report 11391491 (Version 1)
Quarter: 2015Q3

REPORT INFORMATION
  Report Type: Spontaneous
  Country: US (occurrence: US)
  Receive Date: 20150818
  Receipt Date: 20150818
  Transmission Date: 20151125
  Serious: Yes (Hospitalization, Other)
  Sender: FDA-Public Use
  Company Number: US-ELI_LILLY_AND_COMPANY-US201508004255

PATIENT
  Age: 83 Year
  Sex: Female

DRUGS (2)
  1. HUMALOG [Suspect]
     Active Substance: INSULIN LISPRO
     Indication: TYPE 2 DIABETES MELLITUS
     Dosage: UNK UNK, PRN
     Route: 065
     Dates: start: 201409
  2. LEVEMIR [Concomitant]
     Active Substance: INSULIN DETEMIR

REACTIONS (8)
  - Blood glucose increased [Unknown]
  - Post procedural complication [Unknown]
  - Bladder obstruction [Unknown]
  - Heart rate decreased [Unknown]
  - Fall [Unknown]
  - Dysuria [Unknown]
  - Fall [Unknown]
  - Procedural pain [Unknown]

NARRATIVE: CASE EVENT DATE: 201409
